FAERS Safety Report 8185218-7 (Version None)
Quarter: 2012Q1

REPORT INFORMATION
  Report Type: 
  Country: None (occurrence: None)
  Receive Date: 20120305
  Receipt Date: 20120227
  Transmission Date: 20120608
  Serious: Yes (Hospitalization, Other)
  Sender: FDA-Public Use
  Company Number: PHHY2011DK61293

PATIENT
  Sex: Female

DRUGS (19)
  1. OXALIPLATIN [Suspect]
     Route: 042
     Dates: start: 20060623, end: 20060712
  2. NEXIUM [Concomitant]
     Indication: GASTRITIS
  3. JERN C ^MEDIC^ [Concomitant]
     Indication: IRON DEFICIENCY
     Dosage: 2 DAGLIG
  4. MAGNESIUM [Concomitant]
     Indication: CONSTIPATION
  5. PAMOL [Concomitant]
     Indication: PAIN
     Dosage: 1 G P.N.
  6. OXALIPLATIN [Suspect]
     Dosage: 203 MG, UNK
     Route: 042
     Dates: start: 20060406, end: 20060530
  7. XELODA [Suspect]
     Indication: COLON CANCER
     Dosage: 1500 MG, UNK
     Route: 048
     Dates: start: 20060406
  8. XELODA [Suspect]
     Route: 048
     Dates: start: 20060623, end: 20060712
  9. XELODA [Suspect]
     Route: 048
     Dates: start: 20060406, end: 20060530
  10. MORPHINE SULFATE [Concomitant]
     Indication: PAIN
  11. OXALIPLATIN [Suspect]
     Indication: COLON CANCER
     Dosage: 203 MG, UNK
     Route: 042
     Dates: start: 20060406
  12. OXALIPLATIN [Suspect]
     Route: 042
     Dates: start: 20060531, end: 20060622
  13. XELODA [Suspect]
     Route: 048
     Dates: start: 20060531
  14. METOPROLOL SUCCINATE [Concomitant]
     Indication: HYPERTENSION
  15. OXALIPLATIN [Suspect]
     Dosage: DOSE: REDUCED TO 75%
     Route: 042
     Dates: start: 20060531, end: 20060622
  16. XELODA [Suspect]
     Route: 048
     Dates: start: 20060531, end: 20060622
  17. XELODA [Suspect]
     Dosage: DOSE REDUCED TO 75%
     Route: 048
     Dates: start: 20060531, end: 20060622
  18. CENTYL MED KALIUMKLORID [Concomitant]
     Indication: HYPERTENSION
     Dosage: 1 DAGLIG
  19. OXALIPLATIN [Suspect]
     Dates: start: 20060531

REACTIONS (12)
  - HYPERTHYROIDISM [None]
  - NAUSEA [None]
  - DIARRHOEA [None]
  - NEUROPATHY PERIPHERAL [None]
  - HYPERTENSION [None]
  - DENTAL CARIES [None]
  - TOOTH LOSS [None]
  - METASTASES TO LIVER [None]
  - GENERAL PHYSICAL HEALTH DETERIORATION [None]
  - TOOTH EROSION [None]
  - ADRENAL MASS [None]
  - MALAISE [None]
